FAERS Safety Report 18387164 (Version 1)
Quarter: 2020Q4

REPORT INFORMATION
  Report Type: Spontaneous
  Country: US (occurrence: US)
  Receive Date: 20201014
  Receipt Date: 20201014
  Transmission Date: 20210114
  Serious: Yes (Hospitalization)
  Sender: FDA-Public Use
  Company Number: None

PATIENT
  Sex: Male

DRUGS (4)
  1. LORATADINE. [Concomitant]
     Active Substance: LORATADINE
  2. SPRYCEL [Suspect]
     Active Substance: DASATINIB
     Indication: CHRONIC LYMPHOCYTIC LEUKAEMIA
     Dosage: 1
     Route: 048
  3. HYDREA [Concomitant]
     Active Substance: HYDROXYUREA
  4. PATIENT IS BLIND IN THE RIGHT EYE [Concomitant]

REACTIONS (1)
  - Hospitalisation [None]
